FAERS Safety Report 7863366-6 (Version None)
Quarter: 2011Q4

REPORT INFORMATION
  Report Type: 
  Country: None (occurrence: None)
  Receive Date: 20111027
  Receipt Date: 20101202
  Transmission Date: 20120403
  Serious: No
  Sender: FDA-Public Use
  Company Number: US-AMGEN-USASP2010007359

PATIENT
  Age: 50 Year
  Sex: Male
  Weight: 70.295 kg

DRUGS (7)
  1. CELEXA [Concomitant]
     Dosage: 20 MG, UNK
  2. OMEGA 3                            /00931501/ [Concomitant]
     Dosage: 1000 MG, UNK
  3. VITAMIN E                          /00110501/ [Concomitant]
     Dosage: 1000 IU, UNK
  4. CALCIUM MAGNESIUM [Concomitant]
  5. ENBREL [Suspect]
     Indication: PRODUCT USED FOR UNKNOWN INDICATION
     Dosage: 25 MG, 2 TIMES/WK
     Route: 058
  6. VITAMIN C                          /00008001/ [Concomitant]
     Dosage: 1000 MG, UNK
  7. VITAMIN K TAB [Concomitant]
     Dosage: UNK

REACTIONS (1)
  - INJECTION SITE SCAR [None]
